FAERS Safety Report 14759315 (Version 1)
Quarter: 2018Q2

REPORT INFORMATION
  Report Type: Report from Study
  Country: US (occurrence: US)
  Receive Date: 20180413
  Receipt Date: 20180413
  Transmission Date: 20180711
  Serious: Yes (Other)
  Sender: FDA-Public Use
  Company Number: US-ALEXION PHARMACEUTICALS INC.-A201804394

PATIENT
  Sex: Male

DRUGS (1)
  1. SOLIRIS [Suspect]
     Active Substance: ECULIZUMAB
     Indication: PRODUCT USED FOR UNKNOWN INDICATION
     Route: 065

REACTIONS (26)
  - Pulmonary haemorrhage [Unknown]
  - Phimosis [Unknown]
  - Dry eye [Unknown]
  - Serositis [Unknown]
  - Adenovirus infection [Unknown]
  - Osteopenia [Unknown]
  - Transaminases increased [Unknown]
  - Compression fracture [Unknown]
  - Proteinuria [Unknown]
  - Diarrhoea [Unknown]
  - Cachexia [Unknown]
  - Diaphragmatic hernia [Unknown]
  - Hypermetropia [Unknown]
  - Pericardial effusion [Unknown]
  - Adrenal insufficiency [Unknown]
  - Immunodeficiency common variable [Unknown]
  - Norovirus test positive [Unknown]
  - Astigmatism [Unknown]
  - Vomiting [Unknown]
  - Corneal abrasion [Unknown]
  - Pleural effusion [Unknown]
  - Toxicity to various agents [Unknown]
  - Potassium wasting nephropathy [Unknown]
  - Vitamin D deficiency [Unknown]
  - Upper respiratory tract infection [Unknown]
  - Hypertension [Unknown]
